FAERS Safety Report 9805987 (Version 1)
Quarter: 2014Q1

REPORT INFORMATION
  Report Type: Spontaneous
  Country: GB (occurrence: None)
  Receive Date: 20140107
  Receipt Date: 20140107
  Transmission Date: 20141002
  Serious: Yes (Other)
  Sender: FDA-Public Use
  Company Number: AUR-APL-2014-00031

PATIENT
  Age: 81 Year
  Sex: Female

DRUGS (1)
  1. METFORMIN (METFORMIN) [Suspect]
     Indication: TYPE 2 DIABETES MELLITUS

REACTIONS (8)
  - Confusional state [None]
  - Disorientation [None]
  - Psychomotor hyperactivity [None]
  - Dizziness [None]
  - Blood glucose abnormal [None]
  - Aggression [None]
  - Blood glucose increased [None]
  - Dementia [None]
